FAERS Safety Report 15171479 (Version 1)
Quarter: 2018Q3

REPORT INFORMATION
  Report Type: Spontaneous
  Country: US (occurrence: US)
  Receive Date: 20180622
  Receipt Date: 20180622
  Transmission Date: 20181010
  Serious: Yes (Hospitalization, Disabling)
  Sender: FDA-Public Use
  Company Number: None

PATIENT
  Age: 27 Year
  Sex: Female
  Weight: 83.25 kg

DRUGS (1)
  1. FLUTICASONE PROPIONATE NASAL SPRAY [Suspect]
     Active Substance: FLUTICASONE PROPIONATE
     Indication: SINUS DISORDER
     Dosage: ?          QUANTITY:1 SPRAY(S);OTHER ROUTE:NOSE?
     Dates: start: 20180413, end: 20180420

REACTIONS (2)
  - Condition aggravated [None]
  - Sinusitis [None]

NARRATIVE: CASE EVENT DATE: 20180413
